FAERS Safety Report 6530860-X (Version None)
Quarter: 2010Q1

REPORT INFORMATION
  Report Type: 
  Country: None (occurrence: None)
  Receive Date: 20100108
  Receipt Date: 20090416
  Transmission Date: 20100710
  Serious: No
  Sender: FDA-Public Use
  Company Number: A0779177A

PATIENT
  Age: 67 Year
  Sex: Female

DRUGS (7)
  1. LOVAZA [Suspect]
     Indication: BLOOD CHOLESTEROL INCREASED
     Dosage: 2CAP TWICE PER DAY
     Route: 048
     Dates: start: 20090301
  2. DOXAZOSIN MESYLATE [Concomitant]
  3. FLUTICASONE NASAL [Concomitant]
  4. CLARITIN [Concomitant]
  5. MULTI-VITAMINS [Concomitant]
  6. COQ10 [Concomitant]
  7. UNKNOWN MEDICATION [Concomitant]

REACTIONS (6)
  - AFFECT LABILITY [None]
  - INSOMNIA [None]
  - MYOPATHY [None]
  - NERVOUSNESS [None]
  - PSYCHOMOTOR HYPERACTIVITY [None]
  - TREMOR [None]
